FAERS Safety Report 16843298 (Version 1)
Quarter: 2019Q3

REPORT INFORMATION
  Report Type: Spontaneous
  Country: US (occurrence: US)
  Receive Date: 20190924
  Receipt Date: 20190924
  Transmission Date: 20191005
  Serious: No
  Sender: FDA-Public Use
  Company Number: US-AMGEN-USASP2019148716

PATIENT
  Age: 65 Year
  Sex: Female

DRUGS (1)
  1. REPATHA [Suspect]
     Active Substance: EVOLOCUMAB
     Indication: TYPE IIA HYPERLIPIDAEMIA
     Dosage: 420 MILLIGRAM, QMO
     Route: 065
     Dates: start: 201903

REACTIONS (5)
  - Osteoarthritis [Unknown]
  - Myalgia [Unknown]
  - Feeling abnormal [Unknown]
  - Injection site pain [Unknown]
  - Therapeutic product effect incomplete [Unknown]

NARRATIVE: CASE EVENT DATE: 2019
